FAERS Safety Report 7998921-6 (Version None)
Quarter: 2011Q4

REPORT INFORMATION
  Report Type: 
  Country: None (occurrence: None)
  Receive Date: 20111221
  Receipt Date: 20111213
  Transmission Date: 20120403
  Serious: Yes (Hospitalization)
  Sender: FDA-Public Use
  Company Number: FR-GLAXOSMITHKLINE-B0768791A

PATIENT
  Sex: Female

DRUGS (6)
  1. BISOPROLOL FUMARATE [Concomitant]
  2. ATORVASTATIN CALCIUM [Concomitant]
  3. LEVOTHYROXINE SODIUM [Concomitant]
  4. ASPIRIN [Concomitant]
  5. ARIXTRA [Suspect]
     Indication: ANGIODERMATITIS
     Dosage: 2.5MG PER DAY
     Route: 058
     Dates: start: 20111022, end: 20111121
  6. REPAGLINIDE [Concomitant]

REACTIONS (1)
  - MUSCLE HAEMORRHAGE [None]
